FAERS Safety Report 9098687 (Version 1)
Quarter: 2013Q1

REPORT INFORMATION
  Report Type: Spontaneous
  Country: US (occurrence: US)
  Receive Date: 20130213
  Receipt Date: 20130213
  Transmission Date: 20140127
  Serious: Yes (Other)
  Sender: FDA-Public Use
  Company Number: US-PFIZER INC-2013053651

PATIENT
  Sex: Female

DRUGS (11)
  1. LYRICA [Suspect]
     Indication: NEURALGIA
     Dosage: 75 MG, 1X/DAY
     Route: 048
     Dates: start: 20130123, end: 20130202
  2. LYRICA [Suspect]
     Dosage: 75 MG, 2X/DAY
     Route: 048
     Dates: start: 20130202, end: 20130205
  3. LYRICA [Suspect]
     Dosage: 75 MG, 1X/DAY
     Route: 048
     Dates: start: 20130206
  4. GABAPENTIN [Suspect]
     Indication: NEURALGIA
     Dosage: 300 MG, UNK
     Route: 048
     Dates: start: 201209, end: 2012
  5. ATENOLOL [Concomitant]
     Indication: HYPERTENSION
     Dosage: 50 MG, 2X/DAY
  6. AMLODIPINE/BENAZEPRIL [Concomitant]
     Indication: HYPERTENSION
     Dosage: 10/20 MG, 1X/DAY
  7. TRAMADOL [Concomitant]
     Dosage: UNK, 2X/DAY
  8. LORTAB [Concomitant]
     Dosage: UNK, 1X/DAY
  9. LATANOPROST [Concomitant]
     Dosage: UNK
  10. BRIMONIDINE [Concomitant]
     Dosage: UNK
  11. DORZOLAMIDE/TIMOLOL [Concomitant]
     Indication: MACULAR DEGENERATION
     Dosage: UNK

REACTIONS (4)
  - Macular degeneration [Unknown]
  - Glaucoma [Unknown]
  - Visual impairment [Unknown]
  - Visual acuity reduced [Unknown]
